FAERS Safety Report 8459062-7 (Version None)
Quarter: 2012Q2

REPORT INFORMATION
  Report Type: 
  Country: None (occurrence: None)
  Receive Date: 20120615
  Receipt Date: 20120530
  Transmission Date: 20120825
  Serious: Yes (Death)
  Sender: FDA-Public Use
  Company Number: JP-2012-15390

PATIENT
  Age: 83 Year
  Sex: Female
  Weight: 43 kg

DRUGS (12)
  1. URINORM (BENZBROMARONE) TABLET [Concomitant]
  2. MEROPENEM [Concomitant]
  3. LANSOPRAZOLE [Concomitant]
  4. SAMSCA [Suspect]
     Indication: FLUID RETENTION
     Dosage: 15 MG MILLIGRAM(S), QAM, ORAL 7.5 MG MILLIGRAM(S), QAM, ORAL
     Route: 048
     Dates: start: 20120519, end: 20120528
  5. SAMSCA [Suspect]
     Indication: FLUID RETENTION
     Dosage: 15 MG MILLIGRAM(S), QAM, ORAL 7.5 MG MILLIGRAM(S), QAM, ORAL
     Route: 048
     Dates: start: 20120529, end: 20120529
  6. KALIMATE (CALCIUM POLYSTYRENE SULFONATE) ORAL POWDER [Concomitant]
  7. LASIX [Concomitant]
  8. DOPUTAMIN (DOBUTAMINE HYDROCHLORIDE) INJECTION [Concomitant]
  9. MEROPENEM [Concomitant]
  10. DOPUTAMIN (DOBUTAMINE HYDROCHLORIDE) INJECTION [Concomitant]
  11. DOPUTAMIN (DOBUTAMINE HYDROCHLORIDE) INJECTION [Concomitant]
  12. DOPUTAMIN (DOBUTAMINE HYDROCHLORIDE) INJECTION [Concomitant]

REACTIONS (7)
  - CONDITION AGGRAVATED [None]
  - BLOOD SODIUM INCREASED [None]
  - CARDIAC FAILURE CONGESTIVE [None]
  - THIRST [None]
  - RENAL IMPAIRMENT [None]
  - DISSEMINATED INTRAVASCULAR COAGULATION [None]
  - ANURIA [None]
